FAERS Safety Report 20574664 (Version 2)
Quarter: 2022Q1

REPORT INFORMATION
  Report Type: Spontaneous
  Country: DE (occurrence: DE)
  Receive Date: 20220309
  Receipt Date: 20220323
  Transmission Date: 20220424
  Serious: Yes (Hospitalization)
  Sender: FDA-Public Use
  Company Number: DE-BIOGEN-2022BI01103783

PATIENT
  Age: 51 Year
  Sex: Female

DRUGS (2)
  1. DALFAMPRIDINE [Suspect]
     Active Substance: DALFAMPRIDINE
     Indication: Multiple sclerosis
     Route: 065
     Dates: start: 20140616
  2. NABIXIMOLS [Suspect]
     Active Substance: NABIXIMOLS
     Indication: Multiple sclerosis
     Dosage: SATIVEX PUFF (ML)
     Route: 065
     Dates: start: 201905

REACTIONS (7)
  - Helicobacter gastritis [Recovered/Resolved]
  - Diarrhoea [Unknown]
  - Weight decreased [Unknown]
  - Bowel movement irregularity [Unknown]
  - Abdominal pain lower [Unknown]
  - Nausea [Unknown]
  - Vomiting [Unknown]

NARRATIVE: CASE EVENT DATE: 20190724
